FAERS Safety Report 4927538-2 (Version None)
Quarter: 2006Q1

REPORT INFORMATION
  Report Type: 
  Country: None (occurrence: None)
  Receive Date: 20060228
  Receipt Date: 20051013
  Transmission Date: 20060701
  Serious: Yes (Disabling, Other)
  Sender: FDA-Public Use
  Company Number: US-MERCK-0510USA07086

PATIENT
  Age: 52 Year
  Sex: Male
  Weight: 95 kg

DRUGS (12)
  1. VIOXX [Suspect]
     Indication: MONARTHRITIS
     Route: 048
     Dates: start: 20000701, end: 20020201
  2. ZOLOFT [Concomitant]
     Indication: DEPRESSION
     Route: 065
     Dates: start: 20050601
  3. ZOLOFT [Concomitant]
     Indication: PANIC DISORDER
     Route: 065
     Dates: start: 20050601
  4. CELEXA [Concomitant]
     Indication: DEPRESSION
     Route: 065
     Dates: start: 20020301, end: 20020101
  5. CELEXA [Concomitant]
     Indication: PANIC DISORDER
     Route: 065
     Dates: start: 20020301, end: 20020101
  6. FOLIC ACID [Concomitant]
     Route: 065
  7. HYDROCODONE HYDROCHLORIDE [Concomitant]
     Indication: ANALGESIC EFFECT
     Route: 065
     Dates: start: 20040501, end: 20040101
  8. OXYCODONE [Concomitant]
     Indication: ANALGESIC EFFECT
     Route: 065
     Dates: start: 20040501, end: 20040101
  9. ROXICET [Concomitant]
     Indication: ANALGESIC EFFECT
     Route: 065
     Dates: start: 20001101, end: 20001201
  10. CLONAZEPAM [Concomitant]
     Indication: DEPRESSION
     Route: 065
     Dates: start: 20020301, end: 20020101
  11. CLONAZEPAM [Concomitant]
     Indication: PANIC DISORDER
     Route: 065
     Dates: start: 20020301, end: 20020101
  12. EFFEXOR [Concomitant]
     Indication: DEPRESSION
     Route: 065
     Dates: start: 20020301

REACTIONS (15)
  - BLOOD CHOLESTEROL INCREASED [None]
  - BRADYPHRENIA [None]
  - CEREBROVASCULAR ACCIDENT [None]
  - COGNITIVE DETERIORATION [None]
  - CONVULSION [None]
  - DIABETES MELLITUS [None]
  - DYSPHAGIA [None]
  - HEMIPLEGIA [None]
  - HYPERGLYCAEMIA [None]
  - HYPERLIPIDAEMIA [None]
  - HYPERTENSION [None]
  - INJURY [None]
  - NEUROLOGICAL SYMPTOM [None]
  - PANIC DISORDER [None]
  - TRANSIENT ISCHAEMIC ATTACK [None]
